FAERS Safety Report 7713130-3 (Version None)
Quarter: 2011Q3

REPORT INFORMATION
  Report Type: 
  Country: None (occurrence: None)
  Receive Date: 20110826
  Receipt Date: 20110818
  Transmission Date: 20111222
  Serious: Yes (Hospitalization)
  Sender: FDA-Public Use
  Company Number: PHEH2011US02002

PATIENT
  Age: 62 Year
  Sex: Female

DRUGS (2)
  1. EVISTA [Concomitant]
     Dosage: UNK UKN, UNK
  2. RECLAST [Suspect]
     Dosage: 5 MG, UNK
     Route: 042

REACTIONS (3)
  - CONFUSIONAL STATE [None]
  - PARALYSIS [None]
  - MYALGIA [None]
